FAERS Safety Report 5291502-7 (Version None)
Quarter: 2007Q2

REPORT INFORMATION
  Report Type: 
  Country: None (occurrence: None)
  Receive Date: 20070403
  Receipt Date: 20070319
  Transmission Date: 20071010
  Serious: Yes (Death)
  Sender: FDA-Public Use
  Company Number: 20073652

PATIENT
  Age: 25 Year
  Sex: Male

DRUGS (1)
  1. LIORESAL [Suspect]
     Indication: MUSCLE SPASTICITY
     Dosage: 1250 MCG, DAILY, INTRATHECAL
     Route: 037

REACTIONS (1)
  - MUSCLE SPASTICITY [None]
